FAERS Safety Report 24458739 (Version 4)
Quarter: 2024Q4

REPORT INFORMATION
  Report Type: Spontaneous
  Country: CA (occurrence: CA)
  Receive Date: 20241018
  Receipt Date: 20241217
  Transmission Date: 20250115
  Serious: Yes (Other)
  Sender: ROCHE
  Company Number: CA-ROCHE-3523369

PATIENT
  Age: 67 Year
  Sex: Female

DRUGS (1)
  1. RITUXIMAB [Suspect]
     Active Substance: RITUXIMAB
     Indication: Rheumatoid arthritis
     Route: 042

REACTIONS (23)
  - Drug ineffective [Unknown]
  - Loss of personal independence in daily activities [Recovering/Resolving]
  - Memory impairment [Recovering/Resolving]
  - Aphonia [Recovering/Resolving]
  - Burning mouth syndrome [Recovering/Resolving]
  - Chronic obstructive pulmonary disease [Recovering/Resolving]
  - Erythema [Recovering/Resolving]
  - Groin pain [Recovering/Resolving]
  - Lymphadenopathy [Recovering/Resolving]
  - Oropharyngeal pain [Recovering/Resolving]
  - Pneumonia [Recovering/Resolving]
  - Productive cough [Recovering/Resolving]
  - Pyrexia [Recovering/Resolving]
  - Peripheral swelling [Recovering/Resolving]
  - Neoplasm malignant [Recovering/Resolving]
  - Dyspnoea exertional [Recovering/Resolving]
  - Fatigue [Recovering/Resolving]
  - Finger deformity [Recovering/Resolving]
  - General physical health deterioration [Recovering/Resolving]
  - Glossodynia [Recovering/Resolving]
  - Mobility decreased [Recovering/Resolving]
  - Nail discolouration [Recovering/Resolving]
  - Sensitivity to weather change [Recovering/Resolving]
